FAERS Safety Report 21341710 (Version 1)
Quarter: 2022Q3

REPORT INFORMATION
  Report Type: Spontaneous
  Country: CN (occurrence: CN)
  Receive Date: 20220916
  Receipt Date: 20220916
  Transmission Date: 20221027
  Serious: Yes (Hospitalization, Other)
  Sender: FDA-Public Use
  Company Number: None

PATIENT
  Age: 57 Year
  Sex: Female
  Weight: 69 kg

DRUGS (4)
  1. CYCLOPHOSPHAMIDE [Suspect]
     Active Substance: CYCLOPHOSPHAMIDE
     Indication: Breast cancer female
     Dosage: 1000 MG, QD, POWDER INJECTION, DILUTED WITH 0.9% SODIUM CHLORIDE INJECTION 100ML, 1ST CYCLE OF AC RE
     Route: 041
     Dates: start: 20220823, end: 20220823
  2. SODIUM CHLORIDE [Suspect]
     Active Substance: SODIUM CHLORIDE
     Indication: Medication dilution
     Dosage: 100ML, QD, INJECTION, DILUTED WITH CYCLOPHOSPHAMIDE INJECTION 1000 MG, 1 CYCLE OF CHEMOTHERAPY
     Route: 041
     Dates: start: 20220823, end: 20220823
  3. DEXTROSE MONOHYDRATE [Suspect]
     Active Substance: DEXTROSE MONOHYDRATE
     Indication: Medication dilution
     Dosage: 100 ML, QD, INJECTION DILUTED WITH PIRARUBICIN HYDROCHLORIDE FOR INJECTION 100 MG
     Route: 041
     Dates: start: 20220823, end: 20220823
  4. PIRARUBICIN HYDROCHLORIDE [Suspect]
     Active Substance: PIRARUBICIN HYDROCHLORIDE
     Indication: Breast cancer female
     Dosage: 100 MG, QD, DILUTED WITH 5% GLUCOSE INJECTION 100ML, 1ST CYCLE OF AC REGIMEN CHEMOTHERAPY
     Route: 041
     Dates: start: 20220823, end: 20220823

REACTIONS (1)
  - Myelosuppression [Recovered/Resolved]

NARRATIVE: CASE EVENT DATE: 20220905
